FAERS Safety Report 8209451-0 (Version None)
Quarter: 2012Q1

REPORT INFORMATION
  Report Type: 
  Country: None (occurrence: None)
  Receive Date: 20120314
  Receipt Date: 20120307
  Transmission Date: 20120608
  Serious: Yes (Hospitalization, Other)
  Sender: FDA-Public Use
  Company Number: US-ALEXION PHARMACEUTICALS INC.-A201200145

PATIENT
  Sex: Female

DRUGS (18)
  1. DILAUDID [Concomitant]
     Dosage: 2 MG, QID PRN
     Route: 048
  2. COREG [Concomitant]
     Dosage: 12.5 MG, BID
     Route: 048
  3. SOLIRIS [Suspect]
     Indication: PAROXYSMAL NOCTURNAL HAEMOGLOBINURIA
     Dosage: 1200 MG, Q2W
     Route: 042
  4. AMBIEN [Concomitant]
     Dosage: 10 MG, QD AT BEDTIME
     Route: 048
  5. CARAFATE [Concomitant]
     Dosage: 1 G, WITH MEALS
  6. BENADRYL [Concomitant]
     Dosage: 25 MG, TID
     Route: 048
  7. FLEXERIL [Concomitant]
     Dosage: 5 MG, TID
     Route: 048
  8. ALPRAZOLAM [Concomitant]
     Dosage: 1 MG, TID PRN
     Route: 048
  9. LACTULOSE [Concomitant]
     Dosage: 30 ML, PRN
  10. LOMOTIL [Concomitant]
     Dosage: UNK, PRN
  11. OMEPRAZOLE [Concomitant]
     Dosage: 40 MG, QD
     Route: 048
  12. ARIXTRA [Concomitant]
     Dosage: 10 MG, QD
     Route: 058
  13. PROMETHAZINE [Concomitant]
     Dosage: 1TAB, Q6 HOURS PRN
     Route: 048
  14. TRAMADOL HCL [Concomitant]
     Dosage: 50-100 MG, Q6 HOURS PRN
     Route: 048
  15. NORCO [Concomitant]
     Dosage: 7.5/325 MG, TID, PRN
     Route: 048
  16. FIORINAL [Concomitant]
     Dosage: 1 CAP, BID
     Route: 048
  17. EXJADE [Concomitant]
     Dosage: 1500 MG, QD
     Route: 048
  18. FOLIC ACID [Concomitant]
     Dosage: 1 MG, QD
     Route: 048

REACTIONS (9)
  - HYPOKALAEMIA [None]
  - UTERINE LEIOMYOMA [None]
  - UTERINE CYST [None]
  - DYSPNOEA [None]
  - CHEST PAIN [None]
  - VOMITING [None]
  - ANAEMIA [None]
  - MENORRHAGIA [None]
  - ENTERITIS [None]
